FAERS Safety Report 14991631 (Version 4)
Quarter: 2018Q3

REPORT INFORMATION
  Report Type: Spontaneous
  Country: AU (occurrence: AU)
  Receive Date: 20180608
  Receipt Date: 20180713
  Transmission Date: 20181010
  Serious: Yes (Other)
  Sender: FDA-Public Use
  Company Number: AU-SHIRE-AU201821001

PATIENT

DRUGS (8)
  1. FEIBA NF [Suspect]
     Active Substance: ANTI-INHIBITOR COAGULANT COMPLEX
     Indication: FACTOR VIII DEFICIENCY
     Dosage: 2000 IU, 1X/DAY:QD
     Route: 065
     Dates: start: 20180509, end: 20180525
  2. FEIBA NF [Suspect]
     Active Substance: ANTI-INHIBITOR COAGULANT COMPLEX
     Indication: PROPHYLAXIS
  3. CYCLOPHOSPHAMIDE. [Concomitant]
     Active Substance: CYCLOPHOSPHAMIDE
     Indication: FACTOR VIII DEFICIENCY
  4. TRANEXAMIC ACID. [Concomitant]
     Active Substance: TRANEXAMIC ACID
     Indication: HAEMOSTASIS
  5. PREDNISONE. [Concomitant]
     Active Substance: PREDNISONE
     Indication: FACTOR VIII DEFICIENCY
  6. RITUXIMAB. [Concomitant]
     Active Substance: RITUXIMAB
     Indication: FACTOR VIII DEFICIENCY
  7. NOVOSEVEN [Concomitant]
     Active Substance: COAGULATION FACTOR VIIA RECOMBINANT HUMAN
     Indication: FACTOR VIII DEFICIENCY
  8. PREDNISOLONE. [Concomitant]
     Active Substance: PREDNISOLONE
     Indication: HAEMOSTASIS

REACTIONS (6)
  - Rectal haemorrhage [Unknown]
  - Disseminated intravascular coagulation [Unknown]
  - Platelet count decreased [Unknown]
  - Blood fibrinogen decreased [Unknown]
  - Gastrointestinal haemorrhage [Unknown]
  - Neoplasm malignant [Unknown]

NARRATIVE: CASE EVENT DATE: 20180509
